FAERS Safety Report 6122590-3 (Version None)
Quarter: 2009Q1

REPORT INFORMATION
  Report Type: 
  Country: None (occurrence: None)
  Receive Date: 20090318
  Receipt Date: 20090309
  Transmission Date: 20090719
  Serious: Yes (Life-Threatening, Hospitalization, Other)
  Sender: FDA-Public Use
  Company Number: US-NOVOPROD-285009

PATIENT
  Age: 44 Year
  Sex: Male

DRUGS (3)
  1. NOVOLIN 70/30 [Suspect]
     Indication: TYPE 1 DIABETES MELLITUS
     Dosage: SLIDING SCALE
     Route: 058
  2. LANTUS [Suspect]
     Indication: TYPE 1 DIABETES MELLITUS
     Dosage: UNKNOWN AM
     Route: 058
  3. INSULIN REGULAR                    /01223201/ [Concomitant]
     Indication: TYPE 1 DIABETES MELLITUS
     Dosage: SLIDING SCALE PM
     Route: 058

REACTIONS (2)
  - CEREBROVASCULAR ACCIDENT [None]
  - MYOCARDIAL INFARCTION [None]
